FAERS Safety Report 6000216-7 (Version None)
Quarter: 2008Q4

REPORT INFORMATION
  Report Type: 
  Country: None (occurrence: None)
  Receive Date: 20081215
  Receipt Date: 20081103
  Transmission Date: 20090506
  Serious: No
  Sender: FDA-Public Use
  Company Number: US-BAYER-200814734BCC

PATIENT
  Age: 47 Year
  Sex: Male
  Weight: 73 kg

DRUGS (2)
  1. ALEVE [Suspect]
     Indication: TRIGGER FINGER
     Dosage: AS USED: 880 MG  UNIT DOSE: 220 MG
     Dates: start: 20081103
  2. VICODIN [Concomitant]
     Dates: start: 20081103

REACTIONS (1)
  - NO ADVERSE EVENT [None]
